FAERS Safety Report 9491447 (Version 1)
Quarter: 2013Q1

REPORT INFORMATION
  Report Type: Not Available
  Country: US (occurrence: US)
  Receive Date: 20120619
  Receipt Date: 20120619
  Transmission Date: 20140127
  Serious: No
  Sender: FDA-Public Use
  Company Number: US-LUNDBECK-DKLU1076861

PATIENT
  Age: 39 Year
  Sex: Female

DRUGS (4)
  1. ONFI [Suspect]
     Indication: CONVULSION
     Route: 048
     Dates: start: 20120202, end: 20120209
  2. ONFI [Suspect]
     Route: 048
     Dates: start: 20120209
  3. ATIVAN [Concomitant]
     Indication: CONVULSION
  4. KEPPRA [Concomitant]
     Indication: CONVULSION

REACTIONS (1)
  - Cough [Not Recovered/Not Resolved]
